FAERS Safety Report 5346366-X (Version None)
Quarter: 2007Q2

REPORT INFORMATION
  Report Type: 
  Country: None (occurrence: None)
  Receive Date: 20070605
  Receipt Date: 20070601
  Transmission Date: 20071010
  Serious: Yes (Death, Hospitalization)
  Sender: FDA-Public Use
  Company Number: US-BOEHRINGER INGELHEIM PHARMACEUTICALS, INC.-2006-BP-02434BP

PATIENT
  Age: 85 Year
  Sex: Male

DRUGS (9)
  1. FLOMAX [Suspect]
     Indication: BENIGN PROSTATIC HYPERPLASIA
     Route: 048
     Dates: start: 20050725
  2. NAMENDA [Concomitant]
     Dates: start: 20050808
  3. SYNTHROID [Concomitant]
     Dates: start: 20050620
  4. REQUIP [Concomitant]
     Dates: start: 20050624
  5. LIPITOR [Concomitant]
     Dates: start: 20051102
  6. AGGRENOX [Concomitant]
     Dates: start: 20051128
  7. FUROSEMIDE [Concomitant]
     Dates: start: 20051212
  8. PLAVIX [Concomitant]
     Dates: start: 20051230
  9. NEXIUM [Concomitant]
     Dates: start: 20050321

REACTIONS (3)
  - CARDIOVASCULAR DISORDER [None]
  - LETHARGY [None]
  - SOMNOLENCE [None]
